FAERS Safety Report 24063633 (Version 5)
Quarter: 2024Q4

REPORT INFORMATION
  Report Type: Spontaneous
  Country: US (occurrence: US)
  Receive Date: 20240709
  Receipt Date: 20241004
  Transmission Date: 20250114
  Serious: Yes (Hospitalization, Other)
  Sender: BIOVITRUM
  Company Number: US-BIOVITRUM-2024-US-009539

PATIENT
  Age: 61 Year
  Sex: Female

DRUGS (3)
  1. VONJO [Suspect]
     Active Substance: PACRITINIB
     Indication: Myelofibrosis
     Dosage: DAILY
     Route: 048
     Dates: start: 20231210
  2. VONJO [Suspect]
     Active Substance: PACRITINIB
     Dosage: TWICE DAILY
     Route: 048
     Dates: start: 20231210
  3. VONJO [Suspect]
     Active Substance: PACRITINIB
     Dosage: TAKING ONE A DAY
     Route: 048

REACTIONS (6)
  - Colitis [Unknown]
  - Diverticulitis [Unknown]
  - Renal failure [Unknown]
  - Intentional product use issue [Unknown]
  - Product use issue [Unknown]
  - Insurance issue [Unknown]
